FAERS Safety Report 15710827 (Version 2)
Quarter: 2019Q1

REPORT INFORMATION
  Report Type: Spontaneous
  Country: US (occurrence: US)
  Receive Date: 20181211
  Receipt Date: 20190122
  Transmission Date: 20190417
  Serious: No
  Sender: FDA-Public Use
  Company Number: US-SA-2018SA335244

PATIENT
  Age: 55 Year
  Sex: Male

DRUGS (3)
  1. SOLIQUA 100/33 [Suspect]
     Active Substance: INSULIN GLARGINE\LIXISENATIDE
     Dosage: 15 U, QD
  2. SOLIQUA 100/33 [Suspect]
     Active Substance: INSULIN GLARGINE\LIXISENATIDE
     Indication: TYPE 2 DIABETES MELLITUS
     Dosage: 25 U, QD
     Route: 065
  3. SOLIQUA 100/33 [Suspect]
     Active Substance: INSULIN GLARGINE\LIXISENATIDE
     Dosage: 19 U, QD
     Route: 065
     Dates: start: 20181111

REACTIONS (8)
  - Blood glucose decreased [Unknown]
  - Abdominal discomfort [Unknown]
  - Nausea [Unknown]
  - Feeling abnormal [Unknown]
  - Hunger [Unknown]
  - Malaise [Recovering/Resolving]
  - Headache [Unknown]
  - Diarrhoea [Unknown]
